FAERS Safety Report 9760999 (Version 1)
Quarter: 2013Q4

REPORT INFORMATION
  Report Type: Spontaneous
  Country: AU (occurrence: AU)
  Receive Date: 20131216
  Receipt Date: 20131216
  Transmission Date: 20140711
  Serious: Yes (Death, Hospitalization, Other)
  Sender: FDA-Public Use
  Company Number: AU-WATSON-2013-22548

PATIENT
  Age: 64 Year
  Sex: Male

DRUGS (7)
  1. PREDNISOLONE (UNKNOWN) [Suspect]
     Indication: PRODUCT USED FOR UNKNOWN INDICATION
     Dosage: 4 MG, DAILY
     Route: 065
  2. COLCHICINE [Concomitant]
     Indication: GOUT
     Dosage: 500 ?G, BID
     Route: 065
  3. NOVORAPID [Concomitant]
     Indication: PRODUCT USED FOR UNKNOWN INDICATION
     Dosage: UNK, TDS
     Route: 065
  4. METFORMIN [Concomitant]
     Indication: PRODUCT USED FOR UNKNOWN INDICATION
     Dosage: 500 MG, DAILY
     Route: 065
  5. FLUCONAZOLE [Concomitant]
     Indication: PRODUCT USED FOR UNKNOWN INDICATION
     Dosage: 200 MG, DAILY
     Route: 065
  6. TRIAMCINOLONE [Concomitant]
     Indication: GOUT
     Dosage: 40 MG, SINGLE RIGHT KNEE
     Route: 014
  7. TRIAMCINOLONE [Concomitant]
     Dosage: 40 MG, SINGLE LEFT KNEE
     Route: 014

REACTIONS (7)
  - Systemic mycosis [Fatal]
  - Renal failure acute [Fatal]
  - Arthritis fungal [Not Recovered/Not Resolved]
  - Brain abscess [Not Recovered/Not Resolved]
  - Abdominal sepsis [Unknown]
  - Deep vein thrombosis [Unknown]
  - Cardiac failure [Unknown]
